FAERS Safety Report 5525097-7 (Version None)
Quarter: 2007Q4

REPORT INFORMATION
  Report Type: 
  Country: None (occurrence: None)
  Receive Date: 20071119
  Receipt Date: 20071113
  Transmission Date: 20080405
  Serious: Yes (Hospitalization, Other)
  Sender: FDA-Public Use
  Company Number: 2007SP023041

PATIENT
  Age: 82 Year
  Sex: Male
  Weight: 81 kg

DRUGS (8)
  1. DESLORATADINE [Suspect]
     Indication: DRUG USE FOR UNKNOWN INDICATION
     Dosage: 5 MG;QD;
  2. COAPROVEL (KARVEA HCT) [Suspect]
     Indication: DRUG USE FOR UNKNOWN INDICATION
     Dosage: 1 DF;QD;PO
     Route: 048
     Dates: end: 20070914
  3. PIROXICAM [Suspect]
     Indication: DRUG USE FOR UNKNOWN INDICATION
     Dosage: PO
     Route: 048
  4. IRBESARTAN [Concomitant]
  5. ACETAMINOPHEN [Concomitant]
  6. ZOLPIDEM TARTRATE [Concomitant]
  7. TRIFLUCAN [Concomitant]
  8. FAZOL [Concomitant]

REACTIONS (1)
  - HYPONATRAEMIA [None]
